FAERS Safety Report 10070513 (Version 2)
Quarter: 2014Q2

REPORT INFORMATION
  Report Type: Spontaneous
  Country: JP (occurrence: None)
  Receive Date: 20140408
  Receipt Date: 20140416
  Transmission Date: 20141212
  Serious: Yes (Hospitalization)
  Sender: FDA-Public Use
  Company Number: JP-20140063

PATIENT
  Age: 6 Decade
  Sex: Male

DRUGS (1)
  1. LIPIODOL ULTRA FLUIDE (ETHIODIZED OIL) [Suspect]
     Indication: THERAPEUTIC EMBOLISATION
     Route: 013

REACTIONS (2)
  - Jaundice cholestatic [None]
  - Bile duct necrosis [None]
